FAERS Safety Report 9535745 (Version 1)
Quarter: 2013Q3

REPORT INFORMATION
  Report Type: Spontaneous
  Country: US (occurrence: US)
  Receive Date: 20130919
  Receipt Date: 20130919
  Transmission Date: 20140515
  Serious: No
  Sender: FDA-Public Use
  Company Number: US-BIOGENIDEC-2013BI088226

PATIENT
  Age: 39 Year
  Sex: Female

DRUGS (1)
  1. TYSABRI [Suspect]
     Indication: MULTIPLE SCLEROSIS
     Route: 042
     Dates: start: 20120831

REACTIONS (7)
  - Hypoaesthesia [Not Recovered/Not Resolved]
  - Thermal burn [Not Recovered/Not Resolved]
  - Burning sensation [Not Recovered/Not Resolved]
  - Stress [Recovered/Resolved]
  - Thermohypoaesthesia [Recovered/Resolved]
  - Fear [Unknown]
  - Multiple sclerosis relapse [Not Recovered/Not Resolved]
